FAERS Safety Report 21254340 (Version 6)
Quarter: 2023Q1

REPORT INFORMATION
  Report Type: Report from Study
  Country: US (occurrence: US)
  Receive Date: 20220825
  Receipt Date: 20230124
  Transmission Date: 20230417
  Serious: Yes (Other)
  Sender: FDA-Public Use
  Company Number: US-UCBSA-2022049198

PATIENT
  Sex: Female
  Weight: 120 kg

DRUGS (4)
  1. CERTOLIZUMAB PEGOL [Suspect]
     Active Substance: CERTOLIZUMAB PEGOL
     Indication: Rheumatoid arthritis
     Dosage: 400 MILLIGRAM, EV 2 WEEKS(QOW)
     Route: 058
     Dates: start: 20220728, end: 2022
  2. CERTOLIZUMAB PEGOL [Suspect]
     Active Substance: CERTOLIZUMAB PEGOL
     Dosage: 400 MILLIGRAM, EV 4 WEEKS
     Route: 058
     Dates: start: 2022, end: 20221107
  3. HYDROXYCHLOROQUINE [Concomitant]
     Active Substance: HYDROXYCHLOROQUINE
     Indication: Rheumatoid arthritis
     Dosage: 200 MILLIGRAM, ONCE DAILY (QD)
     Route: 048
     Dates: start: 2008
  4. HERPES SIMPLEX VACCINE [Concomitant]
     Active Substance: HERPES SIMPLEX VACCINE
     Indication: Herpes zoster
     Dosage: UNK

REACTIONS (11)
  - Fall [Not Recovered/Not Resolved]
  - Herpes zoster [Recovered/Resolved]
  - Back pain [Not Recovered/Not Resolved]
  - Arthralgia [Not Recovered/Not Resolved]
  - Nasopharyngitis [Not Recovered/Not Resolved]
  - Photosensitivity reaction [Recovered/Resolved]
  - Pruritus [Recovering/Resolving]
  - Burning sensation [Recovered/Resolved]
  - Onychoclasis [Recovering/Resolving]
  - Blister [Recovered/Resolved]
  - Drug ineffective [Unknown]

NARRATIVE: CASE EVENT DATE: 20220101
